FAERS Safety Report 11703262 (Version 1)
Quarter: 2015Q4

REPORT INFORMATION
  Report Type: Spontaneous
  Country: US (occurrence: US)
  Receive Date: 20151105
  Receipt Date: 20151105
  Transmission Date: 20160304
  Serious: No
  Sender: FDA-Public Use
  Company Number: US-GLAXOSMITHKLINE-US2015GSK157270

PATIENT
  Sex: Female

DRUGS (1)
  1. FLUTICASONE PROPIONATE NASAL SPRAY [Suspect]
     Active Substance: FLUTICASONE PROPIONATE
     Indication: SINUS HEADACHE
     Dosage: 2 PUFF(S), QD
     Route: 045
     Dates: start: 20151008

REACTIONS (9)
  - Dizziness [Unknown]
  - Erythema [Unknown]
  - Malaise [Unknown]
  - Off label use [Unknown]
  - Product quality issue [Unknown]
  - Balance disorder [Unknown]
  - Acne [Unknown]
  - Nasal discomfort [Unknown]
  - Drug ineffective [Unknown]
